FAERS Safety Report 5091442-2 (Version None)
Quarter: 2006Q3

REPORT INFORMATION
  Report Type: 
  Country: None (occurrence: None)
  Receive Date: 20060727
  Receipt Date: 20060410
  Transmission Date: 20061208
  Serious: Yes (Other)
  Sender: FDA-Public Use
  Company Number: 2006051536

PATIENT
  Age: 45 Year
  Sex: Female
  Weight: 87.9978 kg

DRUGS (5)
  1. LYRICA [Suspect]
     Indication: NEURALGIA
     Dosage: 150 MG (50 MG,3 IN 1 D),ORAL
     Route: 048
     Dates: start: 20060301, end: 20060405
  2. ZYRTEC [Concomitant]
  3. SUDAFED 12 HOUR [Concomitant]
  4. ALL OTHER THERAPEUTIC PRODUCTS (ALL OTHER THERAPEUTIC PRODUCTS) [Concomitant]
  5. BACITRACIN/ NEOMYCIN/ POLYMYXIN B (BACITRACIN, NEOMYCIN, POLYMYXIN B) [Concomitant]

REACTIONS (2)
  - MUSCLE SPASMS [None]
  - SOMNOLENCE [None]
